FAERS Safety Report 11197393 (Version 1)
Quarter: 2015Q2

REPORT INFORMATION
  Report Type: Spontaneous
  Country: US (occurrence: US)
  Receive Date: 20150617
  Receipt Date: 20150617
  Transmission Date: 20150821
  Serious: Yes (Death, Hospitalization)
  Sender: FDA-Public Use
  Company Number: US-UNITED THERAPEUTICS-UNT-2015-006934

PATIENT
  Sex: Female

DRUGS (1)
  1. REMODULIN [Suspect]
     Active Substance: TREPROSTINIL
     Dosage: 0.117 ?G/KG, CONTINUING
     Route: 041
     Dates: start: 20120406, end: 20150606

REACTIONS (2)
  - Surgery [Unknown]
  - Condition aggravated [Fatal]

NARRATIVE: CASE EVENT DATE: 20150606
